FAERS Safety Report 8256635-1 (Version None)
Quarter: 2012Q2

REPORT INFORMATION
  Report Type: 
  Country: None (occurrence: None)
  Receive Date: 20120403
  Receipt Date: 20120323
  Transmission Date: 20120825
  Serious: Yes (Hospitalization, Other)
  Sender: FDA-Public Use
  Company Number: JP-MERCK-1202USA01436

PATIENT
  Age: 66 Year
  Sex: Male

DRUGS (8)
  1. AMARYL [Concomitant]
     Route: 065
  2. JANUVIA [Suspect]
     Indication: TYPE 2 DIABETES MELLITUS
     Route: 048
     Dates: start: 20111217, end: 20111226
  3. JANUVIA [Suspect]
     Route: 048
     Dates: start: 20111227, end: 20120101
  4. DIOVAN [Concomitant]
     Route: 065
  5. KINEDAK [Concomitant]
     Route: 065
     Dates: start: 20111001
  6. ALLOPURINOL [Concomitant]
     Route: 065
  7. NORVASC [Concomitant]
     Route: 065
  8. LANSOPRAZOLE [Concomitant]
     Route: 065

REACTIONS (1)
  - ANGINA UNSTABLE [None]
